FAERS Safety Report 5353060-8 (Version None)
Quarter: 2007Q2

REPORT INFORMATION
  Report Type: 
  Country: None (occurrence: None)
  Receive Date: 20070611
  Receipt Date: 20070530
  Transmission Date: 20071010
  Serious: Yes (Hospitalization)
  Sender: FDA-Public Use
  Company Number: JP-PFIZER INC-2007044172

PATIENT
  Age: 47 Year
  Sex: Male

DRUGS (2)
  1. ZITHROMAC [Suspect]
     Indication: PNEUMONIA
     Dosage: DAILY DOSE:500MG
     Route: 048
     Dates: start: 20070521, end: 20070522
  2. AVELOX [Concomitant]
     Indication: PNEUMONIA
     Dosage: DAILY DOSE:400MG
     Dates: start: 20070518, end: 20070520

REACTIONS (2)
  - BRADYCARDIA [None]
  - CARDIOMEGALY [None]
